FAERS Safety Report 23549396 (Version 1)
Quarter: 2024Q1

REPORT INFORMATION
  Report Type: Spontaneous
  Country: US (occurrence: None)
  Receive Date: 20240220
  Receipt Date: 20240220
  Transmission Date: 20240409
  Serious: Yes (Other)
  Sender: FDA-Public Use
  Company Number: None

PATIENT
  Age: 7 Year
  Sex: Male
  Weight: 17.8 kg

DRUGS (3)
  1. ARIPIPRAZOLE [Suspect]
     Active Substance: ARIPIPRAZOLE
     Indication: Disruptive mood dysregulation disorder
     Dosage: FREQUENCY : DAILY;?
     Route: 048
     Dates: start: 20240209, end: 20240212
  2. Vyanse 40mg cap [Concomitant]
  3. Clonidine 0.1mg ER tab [Concomitant]

REACTIONS (5)
  - Feeling abnormal [None]
  - Drooling [None]
  - Fall [None]
  - Unresponsive to stimuli [None]
  - Neuroleptic malignant syndrome [None]

NARRATIVE: CASE EVENT DATE: 20240212
